FAERS Safety Report 5530454-9 (Version None)
Quarter: 2007Q4

REPORT INFORMATION
  Report Type: 
  Country: None (occurrence: None)
  Receive Date: 20071127
  Receipt Date: 20071127
  Transmission Date: 20080405
  Serious: Yes (Death)
  Sender: FDA-Public Use
  Company Number: None

PATIENT
  Sex: Male
  Weight: 58.9676 kg

DRUGS (13)
  1. OSI-774 (ERLOTINIB) 150MG (OSI PHARMACEUTICALS) [Suspect]
     Indication: NON-SMALL CELL LUNG CANCER METASTATIC
     Dosage: 150MG PO DAILY
     Route: 048
     Dates: start: 20070523, end: 20070727
  2. LIPITOR [Concomitant]
  3. MEGACE [Concomitant]
  4. METOPROLOL [Concomitant]
  5. FLOMAX [Concomitant]
  6. AMBIEN [Concomitant]
  7. SENOKOT [Concomitant]
  8. PROMETHAZINE [Concomitant]
  9. PILOCARPINE [Concomitant]
  10. QUININE SULFATE [Concomitant]
  11. MORPHINE [Concomitant]
  12. DILAUDID [Concomitant]
  13. LORTAB [Concomitant]

REACTIONS (7)
  - BACK PAIN [None]
  - DECUBITUS ULCER [None]
  - DEHYDRATION [None]
  - DISEASE PROGRESSION [None]
  - PULSE ABSENT [None]
  - RESPIRATORY ARREST [None]
  - UNRESPONSIVE TO STIMULI [None]
